FAERS Safety Report 4465946-7 (Version None)
Quarter: 2004Q3

REPORT INFORMATION
  Report Type: 
  Country: None (occurrence: None)
  Receive Date: 20040930
  Receipt Date: 20040930
  Transmission Date: 20050211
  Serious: Yes (Other)
  Sender: FDA-Public Use
  Company Number: None

PATIENT
  Age: 36 Year
  Sex: Female

DRUGS (3)
  1. QUETIAPINE [Suspect]
     Indication: BIPOLAR DISORDER
     Dosage: 100 MG ORAL
     Route: 048
     Dates: start: 20031201, end: 20040501
  2. LAMOTRIGINE [Concomitant]
  3. CLONAZEPAM [Concomitant]

REACTIONS (4)
  - DIZZINESS [None]
  - DRUG WITHDRAWAL SYNDROME [None]
  - HEADACHE [None]
  - NAUSEA [None]
